FAERS Safety Report 15286722 (Version 1)
Quarter: 2018Q3

REPORT INFORMATION
  Report Type: Report from Study
  Country: US (occurrence: US)
  Receive Date: 20180816
  Receipt Date: 20180816
  Transmission Date: 20181010
  Serious: No
  Sender: FDA-Public Use
  Company Number: US-AMGEN-USASL2018100534

PATIENT
  Age: 24 Year
  Sex: Female

DRUGS (1)
  1. PARSABIV [Suspect]
     Active Substance: ETELCALCETIDE HYDROCHLORIDE
     Indication: PRODUCT USED FOR UNKNOWN INDICATION
     Dosage: UNK
     Route: 065
     Dates: start: 20180123, end: 20180709

REACTIONS (3)
  - Hypoaesthesia oral [Unknown]
  - Drug intolerance [Unknown]
  - Ageusia [Unknown]

NARRATIVE: CASE EVENT DATE: 2018
